FAERS Safety Report 6263388-5 (Version None)
Quarter: 2009Q3

REPORT INFORMATION
  Report Type: 
  Country: None (occurrence: None)
  Receive Date: 20090710
  Receipt Date: 20080924
  Transmission Date: 20100115
  Serious: No
  Sender: FDA-Public Use
  Company Number: A0749236A

PATIENT
  Sex: Female

DRUGS (5)
  1. FLOVENT [Suspect]
     Indication: ASTHMA
     Dosage: 2PUFF TWICE PER DAY
     Route: 055
     Dates: start: 20050101
  2. LISINOPRIL [Suspect]
     Indication: HYPERTENSION
     Dosage: 10MG PER DAY
     Dates: start: 20080101
  3. PRED FORTE [Suspect]
  4. ACULAR [Suspect]
  5. ALBUTEROL [Concomitant]

REACTIONS (5)
  - CANDIDIASIS [None]
  - DISCOMFORT [None]
  - GINGIVAL PAIN [None]
  - STOMATITIS [None]
  - TONGUE COATED [None]
